FAERS Safety Report 5601387-4 (Version None)
Quarter: 2008Q1

REPORT INFORMATION
  Report Type: 
  Country: None (occurrence: None)
  Receive Date: 20080124
  Receipt Date: 20080111
  Transmission Date: 20080703
  Serious: Yes (Hospitalization)
  Sender: FDA-Public Use
  Company Number: FR-ROCHE-534089

PATIENT
  Age: 6 Year
  Sex: Female
  Weight: 18 kg

DRUGS (5)
  1. CELLCEPT [Suspect]
     Indication: NEPHROTIC SYNDROME
     Route: 048
  2. MABTHERA [Suspect]
     Indication: NEPHROTIC SYNDROME
     Dosage: FORM: INJECTABLE SOLUTION
     Route: 042
     Dates: start: 20070820, end: 20070910
  3. BACTRIM [Interacting]
     Indication: INFECTION PROPHYLAXIS
     Route: 048
  4. NEORAL [Concomitant]
     Indication: NEPHROTIC SYNDROME
  5. CORTICOSTEROID NOS [Concomitant]
     Indication: NEPHROTIC SYNDROME

REACTIONS (5)
  - DRUG INTERACTION [None]
  - GINGIVAL HYPERPLASIA [None]
  - GINGIVAL INFECTION [None]
  - NEUTROPENIA [None]
  - VIRAL INFECTION [None]
